FAERS Safety Report 12843340 (Version 1)
Quarter: 2016Q4

REPORT INFORMATION
  Report Type: Spontaneous
  Country: US (occurrence: US)
  Receive Date: 20161013
  Receipt Date: 20161013
  Transmission Date: 20170207
  Serious: No
  Sender: FDA-Public Use
  Company Number: US-ACTAVIS-2016-04902

PATIENT
  Sex: Female
  Weight: 88 kg

DRUGS (3)
  1. GABAPENTIN (AELLC) [Suspect]
     Active Substance: GABAPENTIN
     Indication: COMPLEX REGIONAL PAIN SYNDROME
  2. SOMA [Concomitant]
     Active Substance: CARISOPRODOL
     Indication: COMPLEX REGIONAL PAIN SYNDROME
     Dosage: UNK, UNKNOWN
     Route: 065
  3. GABAPENTIN (AELLC) [Suspect]
     Active Substance: GABAPENTIN
     Indication: NEURALGIA
     Dosage: 300 MG, UNK
     Route: 048

REACTIONS (1)
  - Drug ineffective [Unknown]
